FAERS Safety Report 8599996-6 (Version None)
Quarter: 2012Q3

REPORT INFORMATION
  Report Type: 
  Country: None (occurrence: None)
  Receive Date: 20120816
  Receipt Date: 20120809
  Transmission Date: 20120928
  Serious: Yes (Other)
  Sender: FDA-Public Use
  Company Number: TR-ABBOTT-12P-161-0967160-00

PATIENT
  Age: 31 Year
  Sex: Male

DRUGS (3)
  1. TOPIRAMATE [Suspect]
     Indication: TEMPORAL LOBE EPILEPSY
     Route: 065
  2. RISPERIDONE [Suspect]
     Indication: AGGRESSION
     Route: 065
  3. VALPROIC ACID [Suspect]
     Indication: TEMPORAL LOBE EPILEPSY
     Route: 065

REACTIONS (9)
  - SALIVARY HYPERSECRETION [None]
  - FEELING ABNORMAL [None]
  - LOSS OF CONSCIOUSNESS [None]
  - EXTRAPYRAMIDAL DISORDER [None]
  - FATIGUE [None]
  - TREATMENT NONCOMPLIANCE [None]
  - CYANOSIS [None]
  - SEXUAL DYSFUNCTION [None]
  - CONVULSION [None]
